FAERS Safety Report 5063914-8 (Version None)
Quarter: 2006Q3

REPORT INFORMATION
  Report Type: 
  Country: None (occurrence: None)
  Receive Date: 20060724
  Receipt Date: 20060711
  Transmission Date: 20061208
  Serious: Yes (Hospitalization, Other)
  Sender: FDA-Public Use
  Company Number: 2005114985

PATIENT
  Age: 56 Year
  Sex: Male
  Weight: 103.4201 kg

DRUGS (1)
  1. CELEBREX [Suspect]
     Indication: ILL-DEFINED DISORDER
     Dosage: 20 MG (10 MG, 2 IN 1 D)
     Dates: start: 20030414

REACTIONS (6)
  - ABASIA [None]
  - ARTERIAL THROMBOSIS LIMB [None]
  - DEEP VEIN THROMBOSIS [None]
  - DYSSTASIA [None]
  - INJURY [None]
  - MONOPLEGIA [None]
